FAERS Safety Report 8958126 (Version 1)
Quarter: 2012Q4

REPORT INFORMATION
  Report Type: 
  Country: GR (occurrence: GR)
  Receive Date: 20121211
  Receipt Date: 20121211
  Transmission Date: 20130627
  Serious: Yes (Life-Threatening)
  Sender: FDA-Public Use
  Company Number: GR-ASTRAZENECA-2012SE92191

PATIENT
  Age: 55 Year
  Sex: Male
  Weight: 94 kg

DRUGS (1)
  1. NEXIUM [Suspect]
     Indication: PROPHYLAXIS
     Route: 048
     Dates: start: 20120620, end: 20120621

REACTIONS (6)
  - Burning sensation [Unknown]
  - Eyelid oedema [Unknown]
  - Joint swelling [Unknown]
  - Blood pressure decreased [Unknown]
  - Rash pruritic [Unknown]
  - Face oedema [Unknown]
